FAERS Safety Report 15272299 (Version 1)
Quarter: 2018Q3

REPORT INFORMATION
  Report Type: Report from Study
  Country: NL (occurrence: NL)
  Receive Date: 20180813
  Receipt Date: 20180813
  Transmission Date: 20181010
  Serious: Yes (Hospitalization)
  Sender: FDA-Public Use
  Company Number: NL-TEVA-2018-NL-939857

PATIENT
  Age: 72 Year
  Sex: Female
  Weight: 64 kg

DRUGS (12)
  1. FENTANYL. [Concomitant]
     Active Substance: FENTANYL
     Dosage: 50 MICROGRAM
     Route: 062
     Dates: start: 20170906
  2. ABRAXANE [Suspect]
     Active Substance: PACLITAXEL
     Indication: PANCREATIC CARCINOMA
     Route: 041
     Dates: start: 20170908
  3. GEMCITABINE [Suspect]
     Active Substance: GEMCITABINE\GEMCITABINE HYDROCHLORIDE
     Indication: PANCREATIC CARCINOMA
     Route: 065
     Dates: start: 20170908
  4. METOCLOPRAMIDE. [Concomitant]
     Active Substance: METOCLOPRAMIDE
     Indication: NAUSEA
     Dosage: 30 MILLIGRAM DAILY; 30 MILLIGRAM
     Route: 048
     Dates: start: 20170908
  5. PARACETAMOL [Concomitant]
     Active Substance: ACETAMINOPHEN
     Dosage: 4000 MILLIGRAM DAILY; 4000 MILLIGRAM
     Route: 048
     Dates: start: 20170906
  6. AMITRIPTYLINE [Concomitant]
     Active Substance: AMITRIPTYLINE
     Indication: DIARRHOEA
     Dosage: 20 MILLIGRAM DAILY; 2  DOSAGE FORMS
     Route: 048
     Dates: start: 20170922
  7. OXYCODON [Concomitant]
     Active Substance: OXYCODONE
     Indication: ABDOMINAL PAIN UPPER
     Dosage: 30 MILLIGRAM DAILY; 30 MILLIGRAM
     Route: 048
     Dates: start: 20170920
  8. FENTANYL. [Concomitant]
     Active Substance: FENTANYL
     Indication: ABDOMINAL PAIN UPPER
     Dosage: 37 MICROGRAM
     Route: 062
     Dates: start: 20170920
  9. AMITRIPTYLINE [Concomitant]
     Active Substance: AMITRIPTYLINE
     Indication: PRODUCT USED FOR UNKNOWN INDICATION
     Dosage: 20 MILLIGRAM DAILY; 20 MILLIGRAM
     Route: 048
     Dates: start: 20170710
  10. PARACETAMOL [Concomitant]
     Active Substance: ACETAMINOPHEN
     Indication: PAIN
     Dosage: 1500 MILLIGRAM DAILY; 1500 MILLIGRAM
     Route: 048
     Dates: start: 20170920
  11. OMEPRAZOLE. [Concomitant]
     Active Substance: OMEPRAZOLE
     Indication: NAUSEA
     Dosage: 40 MILLIGRAM DAILY; 40 MILLIGRAM
     Route: 048
     Dates: start: 20170922
  12. OXYCODON [Concomitant]
     Active Substance: OXYCODONE
     Dosage: 60 MILLIGRAM DAILY; 60 MILLIGRAM
     Route: 048
     Dates: start: 20170803

REACTIONS (3)
  - Diarrhoea [Unknown]
  - Nausea [Unknown]
  - Diarrhoea [Not Recovered/Not Resolved]

NARRATIVE: CASE EVENT DATE: 20170915
